FAERS Safety Report 7532259-6 (Version None)
Quarter: 2011Q2

REPORT INFORMATION
  Report Type: 
  Country: None (occurrence: None)
  Receive Date: 20110608
  Receipt Date: 20101004
  Transmission Date: 20111010
  Serious: No
  Sender: FDA-Public Use
  Company Number: US-TEVA-250682USA

PATIENT
  Age: 76 Year
  Sex: Female
  Weight: 59.065 kg

DRUGS (3)
  1. ESTROPIPATE [Suspect]
     Route: 048
  2. NOVOTHYRAL [Suspect]
     Indication: THYROID DISORDER
  3. ENJUVIA [Suspect]
     Route: 048
     Dates: start: 20090101

REACTIONS (7)
  - HERPES ZOSTER [None]
  - HAIR TEXTURE ABNORMAL [None]
  - VISION BLURRED [None]
  - ALOPECIA [None]
  - RASH [None]
  - ASTHENIA [None]
  - PAIN [None]
